FAERS Safety Report 7031609-7 (Version None)
Quarter: 2010Q4

REPORT INFORMATION
  Report Type: 
  Country: None (occurrence: None)
  Receive Date: 20101006
  Receipt Date: 20101006
  Transmission Date: 20110411
  Serious: Yes (Other)
  Sender: FDA-Public Use
  Company Number: None

PATIENT
  Age: 54 Year
  Sex: Male
  Weight: 113.3993 kg

DRUGS (2)
  1. WELLBUTRIN SR [Suspect]
     Indication: ATTENTION DEFICIT/HYPERACTIVITY DISORDER
     Dosage: 100 MG BID PO
     Route: 048
     Dates: start: 20051120, end: 20100825
  2. WELLBUTRIN SR [Suspect]
     Indication: MAJOR DEPRESSION
     Dosage: 100 MG BID PO
     Route: 048
     Dates: start: 20051120, end: 20100825

REACTIONS (3)
  - DIZZINESS [None]
  - PRODUCT SUBSTITUTION ISSUE [None]
  - RESTLESSNESS [None]
